FAERS Safety Report 11696582 (Version 1)
Quarter: 2015Q4

REPORT INFORMATION
  Report Type: Spontaneous
  Country: JP (occurrence: JP)
  Receive Date: 20151104
  Receipt Date: 20151104
  Transmission Date: 20160304
  Serious: Yes (Other)
  Sender: FDA-Public Use
  Company Number: JP-SA-2015SA173639

PATIENT
  Age: 70 Year
  Sex: Male

DRUGS (2)
  1. ELPLAT [Suspect]
     Active Substance: OXALIPLATIN
     Indication: RECTAL CANCER
     Dosage: INJECTION SOLUTION
     Route: 041
  2. XELODA [Concomitant]
     Active Substance: CAPECITABINE

REACTIONS (1)
  - Bone marrow failure [Unknown]
